FAERS Safety Report 8184156-3 (Version None)
Quarter: 2012Q1

REPORT INFORMATION
  Report Type: 
  Country: None (occurrence: None)
  Receive Date: 20120305
  Receipt Date: 20110502
  Transmission Date: 20120608
  Serious: No
  Sender: FDA-Public Use
  Company Number: US-ABBOTT-11P-163-0722957-00

PATIENT
  Age: 50 Year
  Sex: Female

DRUGS (1)
  1. BIAXIN XL [Suspect]
     Indication: SINUSITIS

REACTIONS (2)
  - PAROSMIA [None]
  - DYSGEUSIA [None]
